FAERS Safety Report 23288555 (Version 2)
Quarter: 2023Q4

REPORT INFORMATION
  Report Type: Spontaneous
  Country: JP (occurrence: None)
  Receive Date: 20231212
  Receipt Date: 20231219
  Transmission Date: 20240110
  Serious: Yes (Hospitalization)
  Sender: FDA-Public Use
  Company Number: 2023A272858

PATIENT
  Age: 87 Year
  Sex: Female

DRUGS (19)
  1. LOKELMA [Suspect]
     Active Substance: SODIUM ZIRCONIUM CYCLOSILICATE
     Indication: Hyperkalaemia
     Dosage: DOSE UNKNOWN
     Route: 048
     Dates: start: 20221207, end: 20230111
  2. LOKELMA [Suspect]
     Active Substance: SODIUM ZIRCONIUM CYCLOSILICATE
     Indication: Hyperkalaemia
     Dosage: DOSE UNKNOWN
     Route: 048
     Dates: start: 20230405, end: 20230503
  3. LOKELMA [Suspect]
     Active Substance: SODIUM ZIRCONIUM CYCLOSILICATE
     Indication: Hyperkalaemia
     Dosage: DOSE UNKNOWN
     Route: 048
     Dates: start: 20230208, end: 20230307
  4. LOKELMA [Suspect]
     Active Substance: SODIUM ZIRCONIUM CYCLOSILICATE
     Indication: Hyperkalaemia
     Dosage: DOSE UNKNOWN
     Route: 048
     Dates: start: 20230308, end: 20230404
  5. TOLVAPTAN [Concomitant]
     Active Substance: TOLVAPTAN
     Dosage: DOSE UNKNOWN
     Dates: start: 20221207
  6. AZOSEMIDE [Concomitant]
     Active Substance: AZOSEMIDE
     Dosage: DOSE UNKNOWN
     Dates: start: 20221207
  7. EPLERENONE [Concomitant]
     Active Substance: EPLERENONE
     Dates: start: 20221207, end: 20230405
  8. EPLERENONE [Concomitant]
     Active Substance: EPLERENONE
     Dosage: DOSE UNKNOWN
     Dates: start: 20221207, end: 20230405
  9. TRICHLORMETHIAZIDE [Concomitant]
     Active Substance: TRICHLORMETHIAZIDE
     Dates: start: 20230428
  10. TRICHLORMETHIAZIDE [Concomitant]
     Active Substance: TRICHLORMETHIAZIDE
     Dosage: 0.5MG UNKNOWN
     Dates: start: 20221207, end: 20230405
  11. PIMOBENDAN [Concomitant]
     Active Substance: PIMOBENDAN
     Dosage: DOSE UNKNOWN
     Dates: start: 20221207
  12. CARVEDILOL [Concomitant]
     Active Substance: CARVEDILOL
     Dosage: DOSE UNKNOWN
     Dates: start: 20221207
  13. CANDESARTAN [Concomitant]
     Active Substance: CANDESARTAN
     Dosage: DOSE UNKNOWN
     Dates: start: 20221207
  14. EMPAGLIFLOZIN [Concomitant]
     Active Substance: EMPAGLIFLOZIN
     Dosage: DOSE UNKNOWN
     Dates: start: 20221207
  15. PRAVASTATIN SODIUM [Concomitant]
     Active Substance: PRAVASTATIN SODIUM
     Dosage: DOSE UNKNOWN
     Dates: start: 20221207
  16. RABEPRAZOLE SODIUM [Concomitant]
     Active Substance: RABEPRAZOLE SODIUM
     Dosage: DOSE UNKNOWN
     Dates: start: 20221207
  17. REBAMIPIDE [Concomitant]
     Active Substance: REBAMIPIDE
     Dosage: DOSE UNKNOWN
     Dates: start: 20221207
  18. CAMOSTAT MESYLATE [Concomitant]
     Active Substance: CAMOSTAT MESYLATE
     Dosage: DOSE UNKNOWN
     Dates: start: 20221207
  19. DOTINURAD [Concomitant]
     Active Substance: DOTINURAD
     Dosage: DOSE UNKNOWN
     Dates: start: 20221207

REACTIONS (3)
  - Cardiac failure chronic [Recovering/Resolving]
  - Hypokalaemia [Recovered/Resolved]
  - Off label use [Unknown]

NARRATIVE: CASE EVENT DATE: 20230111
